FAERS Safety Report 5257337-6 (Version None)
Quarter: 2007Q1

REPORT INFORMATION
  Report Type: 
  Country: None (occurrence: None)
  Receive Date: 20070307
  Receipt Date: 20070225
  Transmission Date: 20070707
  Serious: Yes (Death)
  Sender: FDA-Public Use
  Company Number: IL-NOVOPROD-261094

PATIENT
  Age: 21 Year
  Sex: Male

DRUGS (1)
  1. NOVOSEVEN [Suspect]
     Indication: HAEMORRHAGE
     Dosage: 7.2 MG, UNK
     Dates: start: 20070201

REACTIONS (2)
  - MULTI-ORGAN FAILURE [None]
  - SEPSIS [None]
